FAERS Safety Report 5575759-0 (Version None)
Quarter: 2007Q4

REPORT INFORMATION
  Report Type: 
  Country: None (occurrence: None)
  Receive Date: 20071221
  Receipt Date: 20071213
  Transmission Date: 20080405
  Serious: Yes (Death)
  Sender: FDA-Public Use
  Company Number: 310012M07FRA

PATIENT
  Age: 25 Year
  Sex: Female
  Weight: 50 kg

DRUGS (5)
  1. GONAL-F [Suspect]
     Dosage: 150 IU, 1 IN 1 DAYS
     Route: 015
  2. OVIDREL [Suspect]
     Dosage: 50%, ONCE
     Dates: start: 20071104, end: 20071104
  3. OVIDREL [Suspect]
     Dosage: 50%, ONCE
     Dates: start: 20071109, end: 20071109
  4. MENOPUR [Suspect]
     Dosage: 75 IU, 1 IN 1 DAYS
  5. GONADORELIN INJ [Concomitant]

REACTIONS (2)
  - CAROTID ARTERY THROMBOSIS [None]
  - CEREBROVASCULAR ACCIDENT [None]
